FAERS Safety Report 23387536 (Version 1)
Quarter: 2024Q1

REPORT INFORMATION
  Report Type: Report from Study
  Country: RO (occurrence: RO)
  Receive Date: 20240110
  Receipt Date: 20240110
  Transmission Date: 20240410
  Serious: Yes (Death)
  Sender: FDA-Public Use
  Company Number: RO-PFIZER INC-PV202400001886

PATIENT
  Age: 67 Year
  Sex: Female
  Weight: 62 kg

DRUGS (2)
  1. IBRANCE [Suspect]
     Active Substance: PALBOCICLIB
     Dosage: 125 MG, CYCLIC (D1-D21)
     Route: 048
     Dates: start: 20210622, end: 20210727
  2. IBRANCE [Suspect]
     Active Substance: PALBOCICLIB
     Dosage: 100 MG, CYCLIC (D1-D21)
     Route: 048
     Dates: start: 20210727

REACTIONS (5)
  - Intestinal obstruction [Fatal]
  - Pulmonary embolism [Fatal]
  - Neutropenia [Recovered/Resolved]
  - Neutropenia [Recovered/Resolved]
  - Neutropenia [Recovered/Resolved]

NARRATIVE: CASE EVENT DATE: 20210706
